FAERS Safety Report 5455149-1 (Version None)
Quarter: 2007Q3

REPORT INFORMATION
  Report Type: 
  Country: None (occurrence: None)
  Receive Date: 20070914
  Receipt Date: 20070904
  Transmission Date: 20080115
  Serious: Yes (Hospitalization)
  Sender: FDA-Public Use
  Company Number: GXKR2007GB07735

PATIENT
  Age: 76 Year
  Sex: Female

DRUGS (4)
  1. TRAMADOL HCL [Suspect]
     Indication: BACK PAIN
     Dosage: ORAL
     Route: 048
  2. FUROSEMIDE [Concomitant]
  3. SIMVASTATIN [Concomitant]
  4. LEVOTHYROXINE SODIUM [Concomitant]

REACTIONS (3)
  - BILE DUCT STENOSIS [None]
  - CHOLANGITIS [None]
  - PAIN [None]
